FAERS Safety Report 9576472 (Version 1)
Quarter: 2013Q4

REPORT INFORMATION
  Report Type: Spontaneous
  Country: US (occurrence: US)
  Receive Date: 20131001
  Receipt Date: 20131001
  Transmission Date: 20140711
  Serious: No
  Sender: FDA-Public Use
  Company Number: US-AMGEN-USASP2013003107

PATIENT
  Age: 42 Year
  Sex: Female
  Weight: 117.91 kg

DRUGS (4)
  1. ENBREL [Suspect]
     Indication: PRODUCT USED FOR UNKNOWN INDICATION
     Dosage: 50 MG/ML, QWK
     Route: 058
  2. SERTRALINE [Concomitant]
     Dosage: 25 MG, UNK
  3. ALEVE [Concomitant]
     Dosage: 220 MG, UNK
  4. MULTIVITAMINS, PLAIN [Concomitant]
     Dosage: UNK

REACTIONS (7)
  - Rash erythematous [Unknown]
  - Rash papular [Unknown]
  - Cough [Unknown]
  - Injection site erythema [Unknown]
  - Injection site pruritus [Unknown]
  - Injection site bruising [Unknown]
  - Injection site pain [Unknown]
